FAERS Safety Report 7643704-X (Version None)
Quarter: 2011Q3

REPORT INFORMATION
  Report Type: 
  Country: None (occurrence: None)
  Receive Date: 20110722
  Receipt Date: 20110716
  Transmission Date: 20111222
  Serious: Yes (Disabling, Other)
  Sender: FDA-Public Use
  Company Number: US-ACCORD-009954

PATIENT
  Sex: Female

DRUGS (1)
  1. ANASTROZOLE [Suspect]
     Indication: BREAST CANCER
     Dates: start: 20100901

REACTIONS (6)
  - MUSCULOSKELETAL DISCOMFORT [None]
  - MOBILITY DECREASED [None]
  - DISCOMFORT [None]
  - BONE DISORDER [None]
  - PAIN [None]
  - QUALITY OF LIFE DECREASED [None]
